FAERS Safety Report 6948379-0 (Version None)
Quarter: 2010Q3

REPORT INFORMATION
  Report Type: 
  Country: None (occurrence: None)
  Receive Date: 20100828
  Receipt Date: 20091102
  Transmission Date: 20110219
  Serious: No
  Sender: FDA-Public Use
  Company Number: US-ABBOTT-09P-163-0606303-00

PATIENT
  Sex: Female
  Weight: 57.658 kg

DRUGS (5)
  1. NIASPAN [Suspect]
     Indication: BLOOD CHOLESTEROL ABNORMAL
     Dates: start: 20080201
  2. NIASPAN [Suspect]
     Indication: LOW DENSITY LIPOPROTEIN INCREASED
  3. NIASPAN [Suspect]
     Indication: HIGH DENSITY LIPOPROTEIN INCREASED
  4. BACTRIM [Suspect]
     Indication: PRODUCT USED FOR UNKNOWN INDICATION
     Dates: end: 20091030
  5. IBUPROFEN [Concomitant]
     Dosage: DAILY
     Route: 048

REACTIONS (6)
  - ERYTHEMA [None]
  - FLUSHING [None]
  - PAIN [None]
  - PRURITUS [None]
  - PYREXIA [None]
  - SINUSITIS [None]
